FAERS Safety Report 9614277 (Version 1)
Quarter: 2013Q4

REPORT INFORMATION
  Report Type: Spontaneous
  Country: FR (occurrence: FR)
  Receive Date: 20131011
  Receipt Date: 20131011
  Transmission Date: 20140711
  Serious: Yes (Hospitalization)
  Sender: FDA-Public Use
  Company Number: FR-ASTRAZENECA-2013SE74172

PATIENT
  Age: 29372 Day
  Sex: Male

DRUGS (10)
  1. BRILIQUE [Suspect]
     Indication: ACUTE CORONARY SYNDROME
     Route: 048
     Dates: start: 201304, end: 20130927
  2. KARDEGIC [Concomitant]
     Indication: ACUTE CORONARY SYNDROME
     Route: 048
     Dates: start: 201304
  3. AMLOR [Concomitant]
     Indication: ACUTE CORONARY SYNDROME
     Route: 048
     Dates: start: 201304
  4. ATENOLOL [Concomitant]
     Indication: ACUTE CORONARY SYNDROME
     Route: 048
     Dates: start: 201304
  5. PERINDOPRIL [Concomitant]
     Indication: ACUTE CORONARY SYNDROME
     Route: 048
     Dates: start: 201304
  6. TAHOR [Concomitant]
     Indication: ACUTE CORONARY SYNDROME
     Route: 048
     Dates: start: 201304
  7. INEXIUM [Concomitant]
     Route: 048
  8. JOSIR [Concomitant]
     Route: 048
  9. DOLIPRANE [Concomitant]
     Route: 048
  10. AVLANE [Concomitant]
     Route: 048

REACTIONS (1)
  - Bone marrow failure [Recovered/Resolved]
